FAERS Safety Report 19067224 (Version 1)
Quarter: 2021Q1

REPORT INFORMATION
  Report Type: Spontaneous
  Country: JP (occurrence: JP)
  Receive Date: 20210329
  Receipt Date: 20210329
  Transmission Date: 20210420
  Serious: Yes (Hospitalization, Other)
  Sender: FDA-Public Use
  Company Number: JP-009507513-2103JPN002205J

PATIENT
  Age: 70 Year
  Sex: Male

DRUGS (4)
  1. PACLITAXEL. [Suspect]
     Active Substance: PACLITAXEL
     Indication: LIP AND/OR ORAL CAVITY CANCER
     Dosage: 80 MILLIGRAM/SQ. METER, QW
     Route: 041
     Dates: start: 202010, end: 202012
  2. CETUXIMAB. [Suspect]
     Active Substance: CETUXIMAB
     Indication: LIP AND/OR ORAL CAVITY CANCER
     Dosage: 400 MILLIGRAM/SQ. METER, QW
     Route: 041
     Dates: start: 202010, end: 202010
  3. CETUXIMAB. [Suspect]
     Active Substance: CETUXIMAB
     Dosage: 250 MILLIGRAM/SQ. METER, QW
     Route: 041
     Dates: start: 202011, end: 202012
  4. KEYTRUDA [Suspect]
     Active Substance: PEMBROLIZUMAB
     Indication: LIP AND/OR ORAL CAVITY CANCER
     Dosage: 200 MILLIGRAM, Q3W
     Route: 041
     Dates: start: 202006, end: 202010

REACTIONS (2)
  - Cholangitis sclerosing [Recovered/Resolved]
  - Malignant neoplasm progression [Unknown]

NARRATIVE: CASE EVENT DATE: 202010
